FAERS Safety Report 10495274 (Version 1)
Quarter: 2014Q3

REPORT INFORMATION
  Report Type: Spontaneous
  Country: US (occurrence: None)
  Receive Date: 20140815
  Receipt Date: 20140815
  Transmission Date: 20150326
  Serious: Yes (Hospitalization, Other)
  Sender: FDA-Public Use
  Company Number: ADR-2014-00402

PATIENT
  Age: 68 Year
  Sex: Male

DRUGS (2)
  1. MORPHINE [Suspect]
     Active Substance: MORPHINE
     Dosage: 0.9772MG/DAY
  2. BACLOFEN. [Suspect]
     Active Substance: BACLOFEN
     Indication: MUSCLE SPASTICITY
     Dosage: 121.16MCG/DAY

REACTIONS (3)
  - Muscle spasms [None]
  - Drug withdrawal syndrome [None]
  - Underdose [None]

NARRATIVE: CASE EVENT DATE: 20140306
